FAERS Safety Report 12501419 (Version 1)
Quarter: 2016Q2

REPORT INFORMATION
  Report Type: Spontaneous
  Country: US (occurrence: US)
  Receive Date: 20160627
  Receipt Date: 20160627
  Transmission Date: 20160815
  Serious: No
  Sender: FDA-Public Use
  Company Number: US-BAYER-2016-124599

PATIENT
  Age: 66 Year
  Sex: Female
  Weight: 56.69 kg

DRUGS (1)
  1. CLARITIN REDITABS [Suspect]
     Active Substance: LORATADINE
     Indication: ARTHRALGIA

REACTIONS (1)
  - Circumstance or information capable of leading to medication error [None]
